FAERS Safety Report 6283966-7 (Version None)
Quarter: 2009Q3

REPORT INFORMATION
  Report Type: 
  Country: None (occurrence: None)
  Receive Date: 20090722
  Receipt Date: 20090709
  Transmission Date: 20100115
  Serious: Yes (Other)
  Sender: FDA-Public Use
  Company Number: 2008AP003027

PATIENT
  Age: 49 Year
  Sex: Male

DRUGS (2)
  1. ALENDRONATE SODIUM [Suspect]
     Dosage: PO
     Route: 048
  2. INSULIN (INSULIN) [Concomitant]

REACTIONS (5)
  - CANDIDIASIS [None]
  - DYSPHAGIA [None]
  - MUCOSAL EROSION [None]
  - TONGUE ULCERATION [None]
  - WRONG TECHNIQUE IN DRUG USAGE PROCESS [None]
